FAERS Safety Report 4536196-0 (Version None)
Quarter: 2004Q4

REPORT INFORMATION
  Report Type: 
  Country: None (occurrence: None)
  Receive Date: 20041223
  Receipt Date: 20041108
  Transmission Date: 20050328
  Serious: Yes (Hospitalization)
  Sender: FDA-Public Use
  Company Number: MCA/KP/074

PATIENT
  Age: 61 Year
  Sex: Female

DRUGS (6)
  1. NABUCOX [Suspect]
     Indication: ILL-DEFINED DISORDER
     Route: 048
     Dates: start: 20040719
  2. PLAVIX [Concomitant]
     Dosage: 75MG PER DAY
  3. TAHOR [Concomitant]
     Dosage: 1TAB PER DAY
  4. SOTALEX [Concomitant]
     Indication: SUPRAVENTRICULAR EXTRASYSTOLES
  5. KALEORID [Concomitant]
     Dosage: 1TAB PER DAY
  6. DAFLON [Concomitant]
     Dosage: 2TAB PER DAY

REACTIONS (2)
  - SYNCOPE VASOVAGAL [None]
  - TACHYARRHYTHMIA [None]
